FAERS Safety Report 11467952 (Version 2)
Quarter: 2015Q4

REPORT INFORMATION
  Report Type: Spontaneous
  Country: US (occurrence: US)
  Receive Date: 20150908
  Receipt Date: 20151023
  Transmission Date: 20160304
  Serious: Yes (Other)
  Sender: FDA-Public Use
  Company Number: US-AMGEN-USASP2015090111

PATIENT
  Age: 14 Year
  Sex: Female

DRUGS (3)
  1. PREDNISONE. [Concomitant]
     Active Substance: PREDNISONE
  2. NPLATE [Suspect]
     Active Substance: ROMIPLOSTIM
     Indication: IMMUNE THROMBOCYTOPENIC PURPURA
     Dosage: 3.5 MUG, UNK
     Route: 065
     Dates: start: 2013
  3. VINCRISTINE [Concomitant]
     Active Substance: VINCRISTINE

REACTIONS (5)
  - No therapeutic response [Unknown]
  - Platelet count abnormal [Not Recovered/Not Resolved]
  - Haemorrhage intracranial [Unknown]
  - Drug effect decreased [Unknown]
  - Splenectomy [Unknown]
